FAERS Safety Report 7122763-7 (Version None)
Quarter: 2010Q4

REPORT INFORMATION
  Report Type: 
  Country: None (occurrence: None)
  Receive Date: 20101124
  Receipt Date: 20101118
  Transmission Date: 20110411
  Serious: Yes (Other)
  Sender: FDA-Public Use
  Company Number: SE-ROCHE-737468

PATIENT
  Sex: Female
  Weight: 57 kg

DRUGS (1)
  1. AVASTIN [Suspect]
     Indication: ACOUSTIC NEUROMA
     Route: 065
     Dates: start: 20091216

REACTIONS (2)
  - AMENORRHOEA [None]
  - MENSTRUAL DISORDER [None]
